FAERS Safety Report 23628856 (Version 1)
Quarter: 2024Q1

REPORT INFORMATION
  Report Type: Spontaneous
  Country: AR (occurrence: AR)
  Receive Date: 20240313
  Receipt Date: 20240313
  Transmission Date: 20240409
  Serious: Yes (Other)
  Sender: FDA-Public Use
  Company Number: AR-PFIZER INC-PV202400032869

PATIENT
  Age: 9 Year
  Sex: Male

DRUGS (1)
  1. GENOTROPIN [Suspect]
     Active Substance: SOMATROPIN
     Indication: Short stature
     Dosage: 0.6 TO 1 MG, 7 TIMES PER WEEK
     Dates: start: 20190822

REACTIONS (4)
  - Ear operation [Unknown]
  - Nasal operation [Unknown]
  - Pharyngeal operation [Unknown]
  - Underweight [Unknown]

NARRATIVE: CASE EVENT DATE: 20240205
